FAERS Safety Report 5352471-4 (Version None)
Quarter: 2007Q2

REPORT INFORMATION
  Report Type: 
  Country: None (occurrence: None)
  Receive Date: 20070518
  Receipt Date: 20060717
  Transmission Date: 20071010
  Serious: Yes (Hospitalization)
  Sender: FDA-Public Use
  Company Number: Q06-037

PATIENT
  Age: 58 Year
  Sex: Male

DRUGS (3)
  1. SAMARIUM [Suspect]
     Indication: PROSTATE CANCER
     Dosage: 0.5 MCI/KG IV X 1
     Route: 042
     Dates: start: 20030130, end: 20030130
  2. ZOMETA [Suspect]
     Dosage: 4 MG IV Q MO
     Route: 042
     Dates: start: 20030131, end: 20030715
  3. MEGESTROL ACETATE [Concomitant]

REACTIONS (1)
  - PAIN [None]
